FAERS Safety Report 4711765-3 (Version None)
Quarter: 2005Q3

REPORT INFORMATION
  Report Type: 
  Country: None (occurrence: None)
  Receive Date: 20050711
  Receipt Date: 20050711
  Transmission Date: 20060218
  Serious: Yes (Hospitalization)
  Sender: FDA-Public Use
  Company Number: None

PATIENT
  Age: 45 Year
  Sex: Male
  Weight: 97.5234 kg

DRUGS (1)
  1. CLINDAMYACIN 300 MG RANBAXY [Suspect]
     Indication: TOOTH ABSCESS
     Dosage: 300 MG EVERY 6 HOURS
     Dates: start: 20050518, end: 20050526

REACTIONS (5)
  - DRUG HYPERSENSITIVITY [None]
  - DYSPHAGIA [None]
  - PAIN [None]
  - STEVENS-JOHNSON SYNDROME [None]
  - URTICARIA [None]
